FAERS Safety Report 9506005 (Version 3)
Quarter: 2021Q3

REPORT INFORMATION
  Report Type: Spontaneous
  Country: US (occurrence: US)
  Receive Date: 20130305
  Receipt Date: 20210713
  Transmission Date: 20211014
  Serious: Yes (Hospitalization, Other)
  Sender: FDA-Public Use
  Company Number: PHEH2013US001937

PATIENT
  Age: 41 Year
  Sex: Female

DRUGS (7)
  1. NEORAL [Concomitant]
     Active Substance: CYCLOSPORINE
     Dosage: UNK
     Route: 065
     Dates: end: 20130124
  2. VALCYTE [Concomitant]
     Active Substance: VALGANCICLOVIR HYDROCHLORIDE
     Indication: VIRAL INFECTION
     Dosage: 2 DF, BID
     Route: 048
     Dates: start: 20130205
  3. ZORTRESS [Suspect]
     Active Substance: EVEROLIMUS
     Indication: PRODUCT USED FOR UNKNOWN INDICATION
     Dosage: 1 MG, BID (12 HOURLY)
     Route: 048
     Dates: end: 20130124
  4. CRESTOR [Concomitant]
     Active Substance: ROSUVASTATIN CALCIUM
     Indication: HYPERLIPIDAEMIA
     Dosage: 20 MG, UNK
     Route: 048
     Dates: start: 20110311
  5. FERROUS SULFATE. [Concomitant]
     Active Substance: FERROUS SULFATE
     Indication: ANAEMIA
     Dosage: 325 MG, BID
     Route: 048
     Dates: start: 20100127
  6. NEORAL [Concomitant]
     Active Substance: CYCLOSPORINE
     Indication: IMMUNOSUPPRESSION
     Dosage: 100 MG IN MORNING AND 75MG IN EVENING
     Route: 048
     Dates: start: 20120927, end: 20130122
  7. CARDIZEM CD [Concomitant]
     Active Substance: DILTIAZEM HYDROCHLORIDE
     Indication: HYPERTENSION
     Dosage: 360 MG, UNK
     Route: 048
     Dates: start: 20110517

REACTIONS (3)
  - Haemoglobin decreased [Unknown]
  - Blood creatinine increased [Unknown]
  - Transplant rejection [Unknown]

NARRATIVE: CASE EVENT DATE: 20130118
